FAERS Safety Report 6518932-7 (Version None)
Quarter: 2009Q4

REPORT INFORMATION
  Report Type: 
  Country: None (occurrence: None)
  Receive Date: 20091228
  Receipt Date: 20091218
  Transmission Date: 20100525
  Serious: Yes (Hospitalization)
  Sender: FDA-Public Use
  Company Number: JP-BAYER-200914900BYL

PATIENT
  Age: 66 Year
  Sex: Male

DRUGS (3)
  1. NEXAVAR [Suspect]
     Indication: HEPATIC NEOPLASM MALIGNANT
     Dosage: UNIT DOSE: 200 MG
     Route: 048
     Dates: start: 20091116, end: 20091203
  2. URSO 250 [Concomitant]
     Indication: HEPATIC CIRRHOSIS
     Dosage: UNIT DOSE: 100 MG
     Route: 048
  3. PARIET [Concomitant]
     Indication: DUODENAL ULCER
     Route: 048

REACTIONS (2)
  - HEPATIC ENCEPHALOPATHY [None]
  - HYPERTENSION [None]
